FAERS Safety Report 22635939 (Version 1)
Quarter: 2023Q2

REPORT INFORMATION
  Report Type: Spontaneous
  Country: FR (occurrence: None)
  Receive Date: 20230623
  Receipt Date: 20230623
  Transmission Date: 20230721
  Serious: Yes (Other)
  Sender: FDA-Public Use
  Company Number: 2023A142050

PATIENT
  Sex: Female

DRUGS (3)
  1. TICAGRELOR [Suspect]
     Active Substance: TICAGRELOR
     Dosage: 90.0MG UNKNOWN
     Route: 048
     Dates: start: 202304
  2. BISOPROLOL [Concomitant]
     Active Substance: BISOPROLOL
  3. KARDEGIC [Concomitant]
     Active Substance: ASPIRIN DL-LYSINE

REACTIONS (10)
  - Blood pressure abnormal [Unknown]
  - Dyspnoea [Unknown]
  - Heart rate decreased [Unknown]
  - Dizziness postural [Unknown]
  - Choking [Unknown]
  - Balance disorder [Unknown]
  - Coordination abnormal [Unknown]
  - Dysstasia [Unknown]
  - Nausea [Unknown]
  - Vision blurred [Unknown]
